FAERS Safety Report 16038286 (Version 1)
Quarter: 2019Q1

REPORT INFORMATION
  Report Type: Spontaneous
  Country: US (occurrence: US)
  Receive Date: 20190305
  Receipt Date: 20190305
  Transmission Date: 20190418
  Serious: Yes (Hospitalization)
  Sender: FDA-Public Use
  Company Number: US-IONIS PHARMACEUTICALS, INC.-2019-TEG-014

PATIENT

DRUGS (1)
  1. TEGSEDI [Suspect]
     Active Substance: INOTERSEN SODIUM
     Indication: FAMILIAL AMYLOIDOSIS
     Dosage: 284 MG, 1/WEEK
     Route: 058
     Dates: start: 20181218

REACTIONS (7)
  - Skin discolouration [Unknown]
  - Hypotension [Unknown]
  - Diabetes mellitus [Unknown]
  - Cardiac assistance device user [Unknown]
  - Joint swelling [Unknown]
  - Prophylaxis [Unknown]
  - Gout [Unknown]
